FAERS Safety Report 18486284 (Version 1)
Quarter: 2020Q4

REPORT INFORMATION
  Report Type: Spontaneous
  Country: JP (occurrence: JP)
  Receive Date: 20201110
  Receipt Date: 20201110
  Transmission Date: 20210114
  Serious: Yes (Other)
  Sender: FDA-Public Use
  Company Number: JP-HQ SPECIALTY-JP-2020INT000129

PATIENT
  Sex: Female

DRUGS (2)
  1. DEXMEDETOMIDINE HYDROCHLORIDE. [Suspect]
     Active Substance: DEXMEDETOMIDINE HYDROCHLORIDE
     Indication: ANALGESIC THERAPY
     Dosage: 0.7 UG/KG,1 HR
     Route: 065
  2. DEXMEDETOMIDINE HYDROCHLORIDE. [Suspect]
     Active Substance: DEXMEDETOMIDINE HYDROCHLORIDE
     Indication: SEDATION

REACTIONS (8)
  - Pneumomediastinum [Recovered/Resolved]
  - Glossoptosis [Recovered/Resolved]
  - Use of accessory respiratory muscles [Recovered/Resolved]
  - Pneumopericardium [Recovered/Resolved]
  - Product administered to patient of inappropriate age [Unknown]
  - Hypotension [Recovered/Resolved]
  - Upper airway obstruction [Recovered/Resolved]
  - Cardiac tamponade [Recovered/Resolved]
